FAERS Safety Report 4500980-X (Version None)
Quarter: 2004Q4

REPORT INFORMATION
  Report Type: 
  Country: None (occurrence: None)
  Receive Date: 20041115
  Receipt Date: 20041013
  Transmission Date: 20050328
  Serious: Yes (Hospitalization, Other)
  Sender: FDA-Public Use
  Company Number: US-MERCK-0410USA02009

PATIENT
  Age: 40 Year
  Sex: Male

DRUGS (5)
  1. VIOXX [Suspect]
     Indication: BACK PAIN
     Route: 048
     Dates: start: 20011001, end: 20040929
  2. VIOXX [Suspect]
     Indication: INJURY
     Route: 048
     Dates: start: 20011001, end: 20040929
  3. VERAPAMIL [Concomitant]
     Route: 065
  4. NEURONTIN [Concomitant]
     Route: 065
  5. DARVOCET-N 100 [Concomitant]
     Route: 065

REACTIONS (12)
  - ASBESTOSIS [None]
  - ASTHMA [None]
  - ATRIAL FIBRILLATION [None]
  - BACK DISORDER [None]
  - CARDIOMEGALY [None]
  - DYSPNOEA [None]
  - EMPHYSEMA [None]
  - HYPERHIDROSIS [None]
  - PALPITATIONS [None]
  - PERICARDIAL CALCIFICATION [None]
  - SURGERY [None]
  - TUBERCULOSIS [None]
